FAERS Safety Report 8270614-X (Version None)
Quarter: 2012Q2

REPORT INFORMATION
  Report Type: 
  Country: None (occurrence: None)
  Receive Date: 20120406
  Receipt Date: 20120328
  Transmission Date: 20120825
  Serious: Yes (Death, Hospitalization)
  Sender: FDA-Public Use
  Company Number: IMP_05822_2012

PATIENT
  Weight: 1 kg

DRUGS (2)
  1. DIGOXIN [Suspect]
     Indication: SUPRAVENTRICULAR TACHYCARDIA
     Dosage: 15 UG/KG/DAY IN THREE DOSES
  2. AMIODARONE HCL [Concomitant]

REACTIONS (6)
  - OVERDOSE [None]
  - TOXICITY TO VARIOUS AGENTS [None]
  - BRADYCARDIA [None]
  - CEREBRAL DISORDER [None]
  - DIARRHOEA [None]
  - CANDIDIASIS [None]
